FAERS Safety Report 15762548 (Version 2)
Quarter: 2019Q1

REPORT INFORMATION
  Report Type: Report from Study
  Country: US (occurrence: US)
  Receive Date: 20181226
  Receipt Date: 20190123
  Transmission Date: 20190417
  Serious: Yes (Hospitalization)
  Sender: FDA-Public Use
  Company Number: US-BRISTOL-MYERS SQUIBB COMPANY-BMS-2018-121192

PATIENT
  Age: 63 Year
  Sex: Male
  Weight: 71.2 kg

DRUGS (2)
  1. NIVOLUMAB [Suspect]
     Active Substance: NIVOLUMAB
     Indication: ADENOID CYSTIC CARCINOMA
     Dosage: 240 MG, Q2WK
     Route: 042
     Dates: start: 20180831, end: 20181205
  2. URELUMAB [Suspect]
     Active Substance: URELUMAB
     Indication: ADENOID CYSTIC CARCINOMA
     Dosage: 8 MG, Q4WK
     Route: 042
     Dates: start: 20180831, end: 20181205

REACTIONS (1)
  - Pneumonitis [Unknown]

NARRATIVE: CASE EVENT DATE: 20181213
